FAERS Safety Report 20322338 (Version 1)
Quarter: 2022Q1

REPORT INFORMATION
  Report Type: Spontaneous
  Country: US (occurrence: US)
  Receive Date: 20220111
  Receipt Date: 20220111
  Transmission Date: 20220423
  Serious: No
  Sender: FDA-Public Use
  Company Number: US-ABBVIE-21K-163-3927555-00

PATIENT
  Age: 76 Year
  Sex: Male

DRUGS (6)
  1. DUOPA [Suspect]
     Active Substance: CARBIDOPA\LEVODOPA
     Indication: Parkinson^s disease
     Route: 050
     Dates: start: 202008
  2. DUOPA [Suspect]
     Active Substance: CARBIDOPA\LEVODOPA
  3. VITAMIN D [Concomitant]
     Active Substance: VITAMIN D NOS
     Indication: Product used for unknown indication
  4. ATORVASTATIN [Concomitant]
     Active Substance: ATORVASTATIN
     Indication: Blood cholesterol increased
  5. COVID-19 VACCINE [Concomitant]
     Indication: COVID-19 immunisation
     Dosage: MFR - PFIZER
     Route: 030
     Dates: start: 20210120, end: 20210120
  6. COVID-19 VACCINE [Concomitant]
     Route: 030
     Dates: start: 20210209, end: 20210209

REACTIONS (5)
  - Device issue [Recovered/Resolved]
  - Initial insomnia [Recovered/Resolved]
  - Hypotension [Not Recovered/Not Resolved]
  - Device dislocation [Recovered/Resolved]
  - Device colour issue [Unknown]

NARRATIVE: CASE EVENT DATE: 20200801
